FAERS Safety Report 23355757 (Version 1)
Quarter: 2024Q1

REPORT INFORMATION
  Report Type: Spontaneous
  Country: US (occurrence: US)
  Receive Date: 20240102
  Receipt Date: 20240102
  Transmission Date: 20240410
  Serious: Yes (Hospitalization, Other)
  Sender: FDA-Public Use
  Company Number: US-STERISCIENCE B.V.-2023-ST-000595

PATIENT
  Age: 8 Decade
  Sex: Male

DRUGS (4)
  1. VANCOMYCIN [Interacting]
     Active Substance: VANCOMYCIN
     Indication: Medical device site joint infection
     Dosage: UNK
     Route: 042
  2. TOBRAMYCIN [Interacting]
     Active Substance: TOBRAMYCIN
     Indication: Medical device site joint infection
     Dosage: 14.4 GRAM
  3. CEFEPIME [Concomitant]
     Active Substance: CEFEPIME HYDROCHLORIDE
     Indication: Medical device site joint infection
     Dosage: UNK
     Route: 042
  4. GENTAMICIN [Concomitant]
     Active Substance: GENTAMICIN
     Indication: Antibiotic therapy
     Dosage: UNK

REACTIONS (2)
  - Acute kidney injury [Unknown]
  - Labelled drug-drug interaction issue [Unknown]
